FAERS Safety Report 6818788-9 (Version None)
Quarter: 2010Q3

REPORT INFORMATION
  Report Type: 
  Country: None (occurrence: None)
  Receive Date: 20100701
  Receipt Date: 20100617
  Transmission Date: 20110219
  Serious: Yes (Other)
  Sender: FDA-Public Use
  Company Number: 2009SP015803

PATIENT
  Age: 58 Year
  Sex: Male
  Weight: 90.2658 kg

DRUGS (7)
  1. BOCEPREVIR [Suspect]
     Indication: HEPATITIS C
     Dosage: 800 MG; TID; PO
     Route: 048
     Dates: start: 20090106, end: 20090716
  2. PEG-INTRON [Suspect]
     Indication: HEPATITIS C
     Dosage: 150 MCG; QW; SC
     Route: 058
     Dates: start: 20081209, end: 20090714
  3. RIBAVIRIN [Suspect]
     Indication: HEPATITIS C
     Dosage: 600 MG; BID; PO, 400 MG; BID; PO
     Route: 048
     Dates: end: 20090716
  4. RIBAVIRIN [Suspect]
     Indication: HEPATITIS C
     Dosage: 600 MG; BID; PO, 400 MG; BID; PO
     Route: 048
     Dates: start: 20081209
  5. IBUPROFEN [Concomitant]
  6. ASPIRIN [Concomitant]
  7. PROCRIT [Concomitant]

REACTIONS (1)
  - PLEURAL FIBROSIS [None]
